FAERS Safety Report 10479674 (Version 1)
Quarter: 2014Q3

REPORT INFORMATION
  Report Type: Report from Study
  Country: CO (occurrence: CO)
  Receive Date: 20140927
  Receipt Date: 20140927
  Transmission Date: 20150326
  Serious: Yes (Other)
  Sender: FDA-Public Use
  Company Number: CO-ABBVIE-14K-036-1287829-00

PATIENT
  Age: 40 Year
  Sex: Female
  Weight: 50 kg

DRUGS (1)
  1. HUMIRA [Suspect]
     Active Substance: ADALIMUMAB
     Indication: RHEUMATOID ARTHRITIS
     Route: 058
     Dates: start: 20121018

REACTIONS (6)
  - Odynophagia [Recovering/Resolving]
  - Inner ear disorder [Recovering/Resolving]
  - Dysphagia [Recovering/Resolving]
  - Ear infection [Recovering/Resolving]
  - Nasopharyngitis [Recovering/Resolving]
  - Deafness [Not Recovered/Not Resolved]

NARRATIVE: CASE EVENT DATE: 20140828
